FAERS Safety Report 6447579-6 (Version None)
Quarter: 2009Q4

REPORT INFORMATION
  Report Type: 
  Country: None (occurrence: None)
  Receive Date: 20091119
  Receipt Date: 20091112
  Transmission Date: 20100525
  Serious: Yes (Hospitalization)
  Sender: FDA-Public Use
  Company Number: US-GILEAD-2009-0025395

PATIENT
  Sex: Female

DRUGS (11)
  1. LETAIRIS [Suspect]
     Indication: PULMONARY ARTERIAL HYPERTENSION
     Route: 048
     Dates: start: 20091009
  2. COUMADIN [Concomitant]
  3. CIALIS [Concomitant]
  4. LASIX [Concomitant]
  5. PROCARDIA [Concomitant]
  6. PLAQUENIL [Concomitant]
  7. AMBIEN [Concomitant]
  8. WELLBUTRIN [Concomitant]
  9. TYLENOL (CAPLET) [Concomitant]
  10. ACIPHEX [Concomitant]
  11. COLACE-T [Concomitant]

REACTIONS (1)
  - DIVERTICULITIS [None]
